FAERS Safety Report 6970688-X (Version None)
Quarter: 2010Q3

REPORT INFORMATION
  Report Type: 
  Country: None (occurrence: None)
  Receive Date: 20100908
  Receipt Date: 20100827
  Transmission Date: 20110219
  Serious: Yes (Hospitalization, Other)
  Sender: FDA-Public Use
  Company Number: US-PFIZER INC-2010095354

PATIENT
  Sex: Female

DRUGS (13)
  1. CHANTIX [Suspect]
     Indication: SMOKING CESSATION THERAPY
     Dosage: ONE STARTER PACK
     Dates: start: 20091201, end: 20100118
  2. ACETAMINOPHEN W/ CODEINE [Concomitant]
     Indication: PAIN
     Dosage: UNK
     Dates: start: 20040101
  3. MONTELUKAST [Concomitant]
     Indication: CHRONIC OBSTRUCTIVE PULMONARY DISEASE
     Dosage: UNK
     Dates: start: 20040101
  4. MONTELUKAST [Concomitant]
     Indication: ASTHMA
  5. ACETAMINOPHEN AND HYDROCODONE BITARTRATE [Concomitant]
     Indication: ANALGESIC THERAPY
     Dosage: UNK
     Dates: start: 20050101
  6. SUMATRIPTAN [Concomitant]
     Indication: MIGRAINE
     Dosage: UNK
     Dates: start: 20090101
  7. ALBUTEROL SULFATE [Concomitant]
     Indication: CHRONIC OBSTRUCTIVE PULMONARY DISEASE
     Dosage: UNK
     Dates: start: 20090101
  8. ALBUTEROL SULFATE [Concomitant]
     Indication: ASTHMA
  9. CRESTOR [Concomitant]
     Indication: HYPERLIPIDAEMIA
     Dosage: UNK
     Dates: start: 20090101
  10. CALCIUM WITH VITAMIN D [Concomitant]
     Indication: OSTEOPOROSIS
     Dosage: UNK
     Dates: start: 20090101
  11. ALENDRONATE SODIUM [Concomitant]
     Indication: OSTEOPOROSIS
     Dosage: UNK
     Dates: start: 20090101
  12. IBUPROFEN [Concomitant]
     Indication: PAIN
     Dosage: UNK
     Dates: start: 20090101
  13. IBUPROFEN [Concomitant]
     Indication: ARTHRITIS

REACTIONS (3)
  - ANXIETY [None]
  - CONVULSION [None]
  - DEPRESSION [None]
